FAERS Safety Report 13242973 (Version 3)
Quarter: 2017Q2

REPORT INFORMATION
  Report Type: Spontaneous
  Country: DK (occurrence: DK)
  Receive Date: 20170217
  Receipt Date: 20170404
  Transmission Date: 20170830
  Serious: Yes (Hospitalization)
  Sender: FDA-Public Use
  Company Number: DK-PFIZER INC-2015194253

PATIENT
  Age: 67 Year
  Sex: Female
  Weight: 77 kg

DRUGS (4)
  1. LOPID [Suspect]
     Active Substance: GEMFIBROZIL
     Indication: DYSLIPIDAEMIA
     Dosage: 600 MG, 2X/DAY (TAKEN MAXIMUM)
     Route: 048
     Dates: start: 201408, end: 20141103
  2. LOSARTAN BLUEFISH [Suspect]
     Active Substance: LOSARTAN
     Indication: HYPERTENSION
     Dosage: 50 MG, ONCE DAILY(AT A RANDOM TIME )
     Route: 048
     Dates: start: 20120217
  3. LOPID [Suspect]
     Active Substance: GEMFIBROZIL
     Indication: BLOOD CHOLESTEROL INCREASED
  4. ALENDRONAT [Concomitant]
     Active Substance: ALENDRONATE SODIUM
     Indication: OSTEOPOROSIS
     Dosage: UNK
     Dates: start: 20130913

REACTIONS (7)
  - Abdominal pain [Recovered/Resolved]
  - Fear of death [Not Recovered/Not Resolved]
  - Cardiac fibrillation [Recovered/Resolved]
  - Sleep disorder [Not Recovered/Not Resolved]
  - Pancreatitis acute [Recovered/Resolved]
  - Pulmonary oedema [Recovered/Resolved]
  - Thrombosis [Recovered/Resolved]

NARRATIVE: CASE EVENT DATE: 201411
